FAERS Safety Report 15265232 (Version 2)
Quarter: 2018Q3

REPORT INFORMATION
  Report Type: Spontaneous
  Country: US (occurrence: US)
  Receive Date: 20180810
  Receipt Date: 20180817
  Transmission Date: 20181010
  Serious: No
  Sender: FDA-Public Use
  Company Number: US-MYLANLABS-2018M1060495

PATIENT
  Sex: Male
  Weight: 77 kg

DRUGS (1)
  1. CLONIDINE TRANSDERMAL SYSTEM [Suspect]
     Active Substance: CLONIDINE
     Indication: HYPERTENSION
     Dosage: 0.3 MG, QW, 0.3MG/DAY ONCE A WEEK
     Route: 062

REACTIONS (1)
  - Drug ineffective [Not Recovered/Not Resolved]
